FAERS Safety Report 8678343 (Version 2)
Quarter: 2013Q2

REPORT INFORMATION
  Report Type: Spontaneous
  Country: JP (occurrence: None)
  Receive Date: 20120705
  Receipt Date: 20130424
  Transmission Date: 20140414
  Serious: Yes (Hospitalization)
  Sender: FDA-Public Use
  Company Number: TCI2012A03219

PATIENT
  Age: 62 Year
  Sex: Male

DRUGS (3)
  1. ACTOS [Suspect]
     Indication: TYPE 2 DIABETES MELLITUS
     Dosage: 15;30 MG (15;30 MG, 1 D), PER ORAL
     Route: 048
     Dates: start: 20080820
  2. UNSPECIFIED INGREDIENT [Concomitant]
  3. UREA DERIVATIVES [Concomitant]

REACTIONS (2)
  - Colon cancer [None]
  - Diabetes mellitus inadequate control [None]
